FAERS Safety Report 8463687-2 (Version None)
Quarter: 2012Q2

REPORT INFORMATION
  Report Type: 
  Country: None (occurrence: None)
  Receive Date: 20120625
  Receipt Date: 20120619
  Transmission Date: 20120825
  Serious: Yes (Other)
  Sender: FDA-Public Use
  Company Number: US-PURDUE-USA-2012-0087789

PATIENT
  Sex: Male
  Weight: 67.075 kg

DRUGS (11)
  1. CALCIUM CARBONATE [Concomitant]
  2. DIGESTIVE ENZYMES [Concomitant]
     Indication: PRODUCT USED FOR UNKNOWN INDICATION
  3. MS CONTIN [Suspect]
     Indication: PAIN
     Dosage: 2 MG, UNK
     Route: 048
     Dates: start: 20120401
  4. HYDROMORPHONE HCL [Concomitant]
     Indication: PRODUCT USED FOR UNKNOWN INDICATION
  5. LEUPROLIDE ACETATE [Concomitant]
  6. MULTIVITAMIN                       /00097801/ [Concomitant]
  7. PROVENGE [Suspect]
     Indication: PROSTATE CANCER METASTATIC
  8. DEXAMETHASONE [Suspect]
     Indication: PRODUCT USED FOR UNKNOWN INDICATION
  9. VICODIN [Concomitant]
  10. PROVENGE [Suspect]
     Indication: PROSTATE CANCER
     Dosage: 250 ML, UNK
     Route: 042
     Dates: start: 20120329, end: 20120329
  11. OMEPRAZOLE [Concomitant]

REACTIONS (6)
  - HYPOXIA [None]
  - SINUS TACHYCARDIA [None]
  - ATELECTASIS [None]
  - DELIRIUM [None]
  - ANAEMIA [None]
  - THROMBOCYTOPENIA [None]
